FAERS Safety Report 5656059-7 (Version None)
Quarter: 2008Q1

REPORT INFORMATION
  Report Type: 
  Country: None (occurrence: None)
  Receive Date: 20080307
  Receipt Date: 20080218
  Transmission Date: 20080703
  Serious: Yes (Other)
  Sender: FDA-Public Use
  Company Number: DK-PFIZER INC-2008020253

PATIENT
  Age: 60 Year
  Sex: Female

DRUGS (2)
  1. CHANTIX [Suspect]
     Indication: SMOKING CESSATION THERAPY
     Route: 048
     Dates: start: 20070101, end: 20080201
  2. NORETHINDRONE ACETATE AND ETHINYL ESTRADIOL [Concomitant]

REACTIONS (2)
  - RENAL PAIN [None]
  - URINE ABNORMALITY [None]
